FAERS Safety Report 7028036-5 (Version None)
Quarter: 2010Q4

REPORT INFORMATION
  Report Type: 
  Country: None (occurrence: None)
  Receive Date: 20101005
  Receipt Date: 20100928
  Transmission Date: 20110411
  Serious: Yes (Hospitalization, Other)
  Sender: FDA-Public Use
  Company Number: JP-BAYER-201010016BYL

PATIENT
  Age: 79 Year
  Sex: Male

DRUGS (10)
  1. NEXAVAR [Suspect]
     Indication: HEPATIC NEOPLASM MALIGNANT
     Dosage: UNIT DOSE: 200 MG
     Route: 048
     Dates: start: 20091221, end: 20091227
  2. NEXAVAR [Suspect]
     Dosage: UNIT DOSE: 200 MG
     Route: 048
     Dates: start: 20091228, end: 20091229
  3. NEXAVAR [Suspect]
     Dosage: TOTAL DAILY DOSE: 400 MG  UNIT DOSE: 200 MG
     Route: 048
     Dates: start: 20091230, end: 20100102
  4. MAGLAX [Concomitant]
     Dosage: UNIT DOSE: 330 MG
     Route: 048
  5. ADJUST A [Concomitant]
     Dosage: UNIT DOSE: 40 MG
     Route: 048
  6. LIVACT [Concomitant]
     Dosage: UNIT DOSE: 4.15 G
     Route: 048
  7. GLAKAY [Concomitant]
     Dosage: UNIT DOSE: 15 MG
     Route: 048
  8. URSO 250 [Concomitant]
     Dosage: UNIT DOSE: 100 MG
     Route: 048
  9. PARIET [Concomitant]
     Dosage: UNIT DOSE: 10 MG
     Route: 048
  10. UFT [Concomitant]
     Dosage: UNIT DOSE: 100 MG
     Route: 048
     Dates: start: 20090921

REACTIONS (15)
  - ABDOMINAL PAIN [None]
  - ALANINE AMINOTRANSFERASE INCREASED [None]
  - ASPARTATE AMINOTRANSFERASE INCREASED [None]
  - BLOOD ALBUMIN DECREASED [None]
  - BLOOD BILIRUBIN INCREASED [None]
  - BLOOD CREATINE PHOSPHOKINASE INCREASED [None]
  - BLOOD PHOSPHORUS DECREASED [None]
  - HAEMORRHAGE [None]
  - HEPATIC FUNCTION ABNORMAL [None]
  - HYPOPHOSPHATAEMIA [None]
  - LIP EROSION [None]
  - PLATELET COUNT DECREASED [None]
  - PYREXIA [None]
  - RASH [None]
  - RASH GENERALISED [None]
